FAERS Safety Report 4907849-7 (Version None)
Quarter: 2006Q1

REPORT INFORMATION
  Report Type: 
  Country: None (occurrence: None)
  Receive Date: 20060210
  Receipt Date: 20060110
  Transmission Date: 20060701
  Serious: Yes (Other)
  Sender: FDA-Public Use
  Company Number: PHBS2006JP00815

PATIENT
  Age: 28 Year
  Sex: Female

DRUGS (5)
  1. NEORAL [Suspect]
     Indication: STEM CELL TRANSPLANT
     Dosage: 75 MG/D
     Route: 048
     Dates: start: 20051002
  2. ITRACONAZOLE [Concomitant]
     Dosage: 200 MG/D
     Route: 048
     Dates: start: 20051208
  3. URSO [Concomitant]
     Dosage: 600 MG/D
     Route: 048
     Dates: start: 20050831
  4. GASTER [Concomitant]
     Dosage: 20 MG/D
     Route: 048
     Dates: start: 20050831
  5. ZYLORIC [Concomitant]
     Dosage: 100 MG/D
     Route: 048

REACTIONS (2)
  - DEAFNESS BILATERAL [None]
  - TINNITUS [None]
